FAERS Safety Report 8172988-7 (Version None)
Quarter: 2012Q1

REPORT INFORMATION
  Report Type: 
  Country: None (occurrence: None)
  Receive Date: 20120223
  Receipt Date: 20120217
  Transmission Date: 20120608
  Serious: Yes (Hospitalization)
  Sender: FDA-Public Use
  Company Number: 2012MA002198

PATIENT
  Age: 82 Year
  Sex: Male

DRUGS (3)
  1. ASPIRIN [Concomitant]
  2. DILTIAZEM HYDROCHLORIDE [Suspect]
     Indication: TACHYCARDIA
     Dosage: 120 MG;HS;PO
     Route: 048
     Dates: start: 20090101, end: 20111201
  3. CALCIUM CARBONATE [Concomitant]

REACTIONS (5)
  - NAUSEA [None]
  - VOMITING [None]
  - HEADACHE [None]
  - CHOLECYSTECTOMY [None]
  - DIARRHOEA [None]
